FAERS Safety Report 10223625 (Version 2)
Quarter: 2014Q2

REPORT INFORMATION
  Report Type: Spontaneous
  Country: US (occurrence: US)
  Receive Date: 20140609
  Receipt Date: 20140609
  Transmission Date: 20141212
  Serious: No
  Sender: FDA-Public Use
  Company Number: US-DRREDDYS-USA/USA/14/0037311

PATIENT
  Sex: Female

DRUGS (1)
  1. FEXOFENADINE HCL  OTC [Suspect]
     Indication: SINUS DISORDER
     Route: 048

REACTIONS (2)
  - Nasopharyngitis [Unknown]
  - Cough [Unknown]
